FAERS Safety Report 9552882 (Version 2)
Quarter: 2013Q3

REPORT INFORMATION
  Report Type: Spontaneous
  Country: US (occurrence: US)
  Receive Date: 20130925
  Receipt Date: 20130925
  Transmission Date: 20140515
  Serious: Yes (Other)
  Sender: FDA-Public Use
  Company Number: US-PURDUE-USA-2012-0082595

PATIENT
  Sex: Female

DRUGS (1)
  1. TRAMADOL (SIMILAR TO NDA 21-745) [Suspect]
     Indication: DRUG ABUSE

REACTIONS (3)
  - Drug dependence [Unknown]
  - Drug abuse [Unknown]
  - Weight decreased [Unknown]
